FAERS Safety Report 22668066 (Version 2)
Quarter: 2025Q3

REPORT INFORMATION
  Report Type: Spontaneous
  Country: EU (occurrence: EU)
  Receive Date: 20230704
  Receipt Date: 20250707
  Transmission Date: 20251020
  Serious: Yes (Hospitalization, Other)
  Sender: AUROBINDO
  Company Number: EU-GLAXOSMITHKLINE-BE2023GSK085571

PATIENT
  Age: 62 Year
  Sex: Female

DRUGS (4)
  1. ARIPIPRAZOLE [Suspect]
     Active Substance: ARIPIPRAZOLE
     Indication: Mania
     Route: 065
  2. ARIPIPRAZOLE [Suspect]
     Active Substance: ARIPIPRAZOLE
     Route: 065
  3. LITHIUM [Suspect]
     Active Substance: LITHIUM
     Indication: Mania
     Route: 065
  4. LITHIUM [Suspect]
     Active Substance: LITHIUM
     Indication: Affective disorder

REACTIONS (20)
  - Psychotic symptom [Recovered/Resolved]
  - Depression [Recovered/Resolved]
  - Adenoma benign [Unknown]
  - Parathyroid tumour benign [Unknown]
  - Renal impairment [Recovered/Resolved]
  - Dysmetropsia [Recovered/Resolved]
  - Fluid intake reduced [Recovered/Resolved]
  - Decreased appetite [Recovered/Resolved]
  - Urine abnormality [Recovered/Resolved]
  - Hyperparathyroidism [Recovered/Resolved]
  - Muscle rigidity [Recovered/Resolved]
  - Metamorphopsia [Recovered/Resolved]
  - Illusion [Recovered/Resolved]
  - Hypokinesia [Recovered/Resolved]
  - Feeling guilty [Recovered/Resolved]
  - Alice in wonderland syndrome [Recovered/Resolved]
  - Hypercalcaemia [Recovered/Resolved]
  - Slow speech [Recovered/Resolved]
  - Feeling abnormal [Recovered/Resolved]
  - Flat affect [Recovered/Resolved]
